FAERS Safety Report 19979384 (Version 1)
Quarter: 2021Q4

REPORT INFORMATION
  Report Type: Report from Study
  Country: None (occurrence: US)
  Receive Date: 20211021
  Receipt Date: 20211021
  Transmission Date: 20220303
  Serious: Yes (Other)
  Sender: FDA-Public Use
  Company Number: US-ABBVIE-21K-163-4057640-00

PATIENT
  Sex: Female
  Weight: 134 kg

DRUGS (3)
  1. HUMIRA [Suspect]
     Active Substance: ADALIMUMAB
     Indication: Crohn^s disease
     Route: 058
  2. COVID-19 VACCINE [Concomitant]
     Indication: COVID-19 immunisation
     Dosage: PFIZER/BIONTECH
     Route: 030
     Dates: start: 20210303, end: 20210303
  3. COVID-19 VACCINE [Concomitant]
     Dosage: PFIZER/BIONTECH
     Route: 030
     Dates: start: 20210324, end: 20210324

REACTIONS (7)
  - Condition aggravated [Not Recovered/Not Resolved]
  - Pulmonary mass [Not Recovered/Not Resolved]
  - Spleen disorder [Unknown]
  - Granulomatous liver disease [Unknown]
  - Exostosis [Unknown]
  - Pulmonary granuloma [Unknown]
  - Pulmonary fibrosis [Unknown]

NARRATIVE: CASE EVENT DATE: 20210101
